FAERS Safety Report 12971545 (Version 1)
Quarter: 2016Q4

REPORT INFORMATION
  Report Type: Spontaneous
  Country: US (occurrence: US)
  Receive Date: 20161123
  Receipt Date: 20161123
  Transmission Date: 20170207
  Serious: No
  Sender: FDA-Public Use
  Company Number: US-JAZZ-2016-US-020127

PATIENT
  Sex: Male

DRUGS (24)
  1. DULOXETINE HCL [Concomitant]
     Active Substance: DULOXETINE HYDROCHLORIDE
  2. NORCO [Concomitant]
     Active Substance: ACETAMINOPHEN\HYDROCODONE BITARTRATE
  3. XYREM [Suspect]
     Active Substance: SODIUM OXYBATE
     Indication: CATAPLEXY
     Dosage: 2.25 G, BID
     Route: 048
     Dates: start: 201312, end: 2013
  4. RAPAFLO [Concomitant]
     Active Substance: SILODOSIN
  5. RITALIN [Concomitant]
     Active Substance: METHYLPHENIDATE HYDROCHLORIDE
  6. NUVIGIL [Concomitant]
     Active Substance: ARMODAFINIL
  7. VENLAFAXINE HCL [Concomitant]
     Active Substance: VENLAFAXINE HYDROCHLORIDE
  8. XYREM [Suspect]
     Active Substance: SODIUM OXYBATE
     Dosage: 4.5 G, BID
     Route: 048
     Dates: start: 201405
  9. PERCOCET                           /00446701/ [Concomitant]
     Active Substance: ACETAMINOPHEN\OXYCODONE HYDROCHLORIDE\OXYCODONE TEREPHTHALATE
  10. HYDROCHLOROTHIAZIDE. [Concomitant]
     Active Substance: HYDROCHLOROTHIAZIDE
  11. DIAZEPAM. [Concomitant]
     Active Substance: DIAZEPAM
  12. LIPITOR [Concomitant]
     Active Substance: ATORVASTATIN CALCIUM
  13. TRIAMCINOLONE [Concomitant]
     Active Substance: TRIAMCINOLONE
  14. ASPIRIN                            /00002701/ [Concomitant]
     Active Substance: ASPIRIN
  15. METHYLPHENIDATE. [Concomitant]
     Active Substance: METHYLPHENIDATE
  16. PRAMIPEXOLE. [Concomitant]
     Active Substance: PRAMIPEXOLE
  17. ADDERALL [Concomitant]
     Active Substance: AMPHETAMINE ASPARTATE\AMPHETAMINE SULFATE\DEXTROAMPHETAMINE SACCHARATE\DEXTROAMPHETAMINE SULFATE
  18. ANUSOL                             /00117301/ [Concomitant]
     Active Substance: BALSAM PERU\BISMUTH HYDROXIDE\BISMUTH SUBGALLATE\BORIC ACID\ZINC OXIDE
  19. VYVANSE [Concomitant]
     Active Substance: LISDEXAMFETAMINE DIMESYLATE
  20. XYREM [Suspect]
     Active Substance: SODIUM OXYBATE
     Indication: NARCOLEPSY
     Dosage: DOSE ADJUSTMENT
     Route: 048
     Dates: start: 2014, end: 2014
  21. AMLODIPINE BESYLATE. [Concomitant]
     Active Substance: AMLODIPINE BESYLATE
  22. ATORVASTATIN [Concomitant]
     Active Substance: ATORVASTATIN
  23. VALSARTAN. [Concomitant]
     Active Substance: VALSARTAN
  24. VITAMIN D3 [Concomitant]
     Active Substance: CHOLECALCIFEROL

REACTIONS (1)
  - Unevaluable event [Unknown]
